FAERS Safety Report 4417105-1 (Version None)
Quarter: 2004Q3

REPORT INFORMATION
  Report Type: 
  Country: None (occurrence: None)
  Receive Date: 20040802
  Receipt Date: 20040728
  Transmission Date: 20050211
  Serious: Yes (Hospitalization)
  Sender: FDA-Public Use
  Company Number: 2004219403US

PATIENT
  Age: 51 Year
  Sex: Male

DRUGS (2)
  1. FRAGMIN [Suspect]
     Indication: KNEE OPERATION
     Dosage: 5000 U, QD, SUBCUTANEOUS
     Route: 058
     Dates: start: 20040608
  2. NAPROSYN [Concomitant]

REACTIONS (1)
  - CELLULITIS [None]
